FAERS Safety Report 10347242 (Version 1)
Quarter: 2014Q3

REPORT INFORMATION
  Report Type: Spontaneous
  Country: US (occurrence: None)
  Receive Date: 20140728
  Receipt Date: 20140728
  Transmission Date: 20150326
  Serious: Yes (Life-Threatening, Hospitalization, Other)
  Sender: FDA-Public Use
  Company Number: None

PATIENT
  Age: 42 Year
  Sex: Female
  Weight: 138 kg

DRUGS (4)
  1. MULTIHANCE [Suspect]
     Active Substance: GADOBENATE DIMEGLUMINE
     Indication: NUCLEAR MAGNETIC RESONANCE IMAGING
     Route: 042
     Dates: start: 20140718, end: 20140718
  2. ADVAIR HFA [Concomitant]
     Active Substance: FLUTICASONE PROPIONATE\SALMETEROL XINAFOATE
  3. VENTOLIN HFA [Concomitant]
     Active Substance: ALBUTEROL SULFATE
  4. DIOVAN [Concomitant]
     Active Substance: VALSARTAN

REACTIONS (11)
  - Nausea [None]
  - Hypersensitivity [None]
  - Foaming at mouth [None]
  - Burning sensation [None]
  - Bradycardia [None]
  - Genital burning sensation [None]
  - Ventricular fibrillation [None]
  - Dyspnoea [None]
  - Ventricular tachycardia [None]
  - Cardiac arrest [None]
  - Respiratory disorder [None]

NARRATIVE: CASE EVENT DATE: 20140718
